FAERS Safety Report 5123628-2 (Version None)
Quarter: 2006Q4

REPORT INFORMATION
  Report Type: 
  Country: None (occurrence: None)
  Receive Date: 20060910
  Receipt Date: 20050926
  Transmission Date: 20070319
  Serious: Yes (Other)
  Sender: FDA-Public Use
  Company Number: USA0509107507

PATIENT
  Age: 70 Year
  Sex: Female

DRUGS (4)
  1. INSULIN (INSULIN,ANIMAL) VIAL [Suspect]
  2. HUMALOG [Suspect]
     Dates: start: 20020101
  3. HUMULIN R [Suspect]
     Indication: DIABETES MELLITUS
  4. HUMULIN L [Suspect]
     Indication: DIABETES MELLITUS
     Dosage: 43 U, DAILY (1/D)
     Dates: start: 19820101

REACTIONS (5)
  - DIABETES MELLITUS INSULIN-DEPENDENT [None]
  - DRUG HYPERSENSITIVITY [None]
  - HYPERSENSITIVITY [None]
  - INJECTION SITE PAIN [None]
  - INJECTION SITE URTICARIA [None]
